FAERS Safety Report 16289918 (Version 1)
Quarter: 2019Q2

REPORT INFORMATION
  Report Type: Spontaneous
  Country: US (occurrence: US)
  Receive Date: 20190508
  Receipt Date: 20190508
  Transmission Date: 20190711
  Serious: Yes (Other)
  Sender: FDA-Public Use
  Company Number: None

PATIENT
  Age: 64 Year
  Sex: Female
  Weight: 68.4 kg

DRUGS (7)
  1. HORMONE REPLACEMENT THERAPY [Concomitant]
     Active Substance: UNSPECIFIED INGREDIENT
  2. FISH OIL [Concomitant]
     Active Substance: FISH OIL
  3. COQ10 [Concomitant]
     Active Substance: UBIDECARENONE
  4. MULTIVITAMIN [Concomitant]
     Active Substance: VITAMINS
  5. PROBIOTICS [Concomitant]
     Active Substance: PROBIOTICS NOS
  6. EMGALITY [Suspect]
     Active Substance: GALCANEZUMAB-GNLM
     Indication: MIGRAINE
     Dosage: ?          QUANTITY:1 INJECTION(S);OTHER FREQUENCY:ONCE A MONTH;OTHER ROUTE:1 DOSE INNJECTED INTO BELLY?
     Dates: start: 20190110, end: 20190309
  7. LEVOTHYROXENE [Concomitant]

REACTIONS (6)
  - Oropharyngeal pain [None]
  - Ear pain [None]
  - Upper-airway cough syndrome [None]
  - Influenza like illness [None]
  - Lymphadenopathy [None]
  - Nasopharyngitis [None]

NARRATIVE: CASE EVENT DATE: 20190202
